FAERS Safety Report 14230399 (Version 1)
Quarter: 2017Q4

REPORT INFORMATION
  Report Type: Spontaneous
  Country: TR (occurrence: TR)
  Receive Date: 20171128
  Receipt Date: 20171128
  Transmission Date: 20180321
  Serious: Yes (Hospitalization)
  Sender: FDA-Public Use
  Company Number: TR-MYLANLABS-2017M1074406

PATIENT
  Age: 5 Decade
  Sex: Female

DRUGS (5)
  1. LITHIUM. [Suspect]
     Active Substance: LITHIUM
     Indication: SCHIZOAFFECTIVE DISORDER BIPOLAR TYPE
     Dosage: 1200MG/DAY
     Route: 065
     Dates: start: 201110, end: 2016
  2. DIAZEPAM. [Concomitant]
     Active Substance: DIAZEPAM
     Indication: TARDIVE DYSKINESIA
     Dosage: UNK
     Route: 065
     Dates: start: 2016, end: 2016
  3. ARIPIPRAZOLE. [Suspect]
     Active Substance: ARIPIPRAZOLE
     Indication: SCHIZOAFFECTIVE DISORDER BIPOLAR TYPE
     Dosage: 30MG/DAY
     Route: 065
     Dates: start: 2012
  4. CLOZAPINE. [Suspect]
     Active Substance: CLOZAPINE
     Indication: TARDIVE DYSKINESIA
     Dosage: INITIAL DOSE NOT STATED; LATER INCREASED TO 250MG/DAY
     Route: 005
     Dates: start: 2016
  5. VITAMIN E                          /00110501/ [Concomitant]
     Active Substance: TOCOPHEROL
     Indication: TARDIVE DYSKINESIA
     Dosage: UNK
     Route: 065
     Dates: start: 2016

REACTIONS (2)
  - Enuresis [Recovered/Resolved]
  - Tardive dyskinesia [Recovering/Resolving]

NARRATIVE: CASE EVENT DATE: 2016
